FAERS Safety Report 7446117-9 (Version None)
Quarter: 2011Q2

REPORT INFORMATION
  Report Type: 
  Country: None (occurrence: None)
  Receive Date: 20110429
  Receipt Date: 20110422
  Transmission Date: 20111010
  Serious: Yes (Death, Hospitalization, Other)
  Sender: FDA-Public Use
  Company Number: A0919515A

PATIENT
  Age: 59 Year
  Sex: Female
  Weight: 53 kg

DRUGS (2)
  1. FLOLAN [Suspect]
     Indication: PULMONARY ARTERIAL HYPERTENSION
     Route: 042
  2. WARFARIN SODIUM [Concomitant]

REACTIONS (10)
  - ASCITES [None]
  - RENAL FAILURE [None]
  - PULMONARY ARTERIAL HYPERTENSION [None]
  - PAIN [None]
  - FLUID OVERLOAD [None]
  - COR PULMONALE [None]
  - FLUID RETENTION [None]
  - URINE OUTPUT DECREASED [None]
  - DEATH [None]
  - OXYGEN SATURATION DECREASED [None]
